FAERS Safety Report 14489893 (Version 6)
Quarter: 2020Q1

REPORT INFORMATION
  Report Type: Report from Study
  Country: KR (occurrence: KR)
  Receive Date: 20180206
  Receipt Date: 20200221
  Transmission Date: 20200409
  Serious: Yes (Hospitalization)
  Sender: FDA-Public Use
  Company Number: KR-ROCHE-2055112

PATIENT
  Age: 34 Year
  Sex: Female
  Weight: 65.3 kg

DRUGS (19)
  1. TRASTUZUMAB. [Suspect]
     Active Substance: TRASTUZUMAB
     Indication: BREAST CANCER
     Route: 042
     Dates: start: 20171222
  2. RABEPRAZOLE [Concomitant]
     Active Substance: RABEPRAZOLE
     Indication: GASTRITIS PROPHYLAXIS
     Route: 048
     Dates: start: 20171222, end: 20180102
  3. ULTRACET [Concomitant]
     Active Substance: ACETAMINOPHEN\TRAMADOL HYDROCHLORIDE
     Indication: METASTASES TO BONE
     Route: 048
     Dates: start: 20171222, end: 20180111
  4. PARACETAMOL [Concomitant]
     Active Substance: ACETAMINOPHEN
     Indication: PYREXIA
     Dosage: FOR FEVER
     Route: 048
     Dates: start: 20180101, end: 20180101
  5. DIPHENYLPYRALINE [Concomitant]
     Active Substance: DIPHENYLPYRALINE
     Indication: PREMEDICATION
     Route: 042
     Dates: start: 20171222
  6. ULTRACET [Concomitant]
     Active Substance: ACETAMINOPHEN\TRAMADOL HYDROCHLORIDE
     Route: 048
     Dates: start: 20180428
  7. PARACETAMOL [Concomitant]
     Active Substance: ACETAMINOPHEN
     Route: 048
     Dates: start: 20180405, end: 20180405
  8. PARACETAMOL [Concomitant]
     Active Substance: ACETAMINOPHEN
     Indication: METASTASES TO BONE
     Route: 048
     Dates: start: 20180202
  9. PERTUZUMAB. [Suspect]
     Active Substance: PERTUZUMAB
     Indication: BREAST CANCER
     Route: 042
     Dates: start: 20171222
  10. TRASTUZUMAB. [Suspect]
     Active Substance: TRASTUZUMAB
     Dosage: MAINTENANCE DOSE?SUBSEQUENT DOSES TAKEN ON 02/FEB/2018, 23/FEB/2018, 16/MAR/2018, 16/APR/2018, 27/AP
     Route: 042
     Dates: start: 20180112
  11. DOCETAXEL. [Suspect]
     Active Substance: DOCETAXEL
     Indication: BREAST CANCER
     Dosage: SUBSEQUENT DOSES TAKEN ON 12/JAN/2018, 02/FEB/2018, 23/FEB/2018, 16/MAR/2018, 16/APR/2018, 27/APR/20
     Route: 042
     Dates: start: 20171222
  12. MAGNESIUM HYDROXIDE. [Concomitant]
     Active Substance: MAGNESIUM HYDROXIDE
     Indication: CONSTIPATION
     Route: 048
     Dates: start: 20171223, end: 20180111
  13. PARACETAMOL [Concomitant]
     Active Substance: ACETAMINOPHEN
     Indication: PREMEDICATION
     Route: 048
     Dates: start: 20171222, end: 20180101
  14. PERTUZUMAB. [Suspect]
     Active Substance: PERTUZUMAB
     Dosage: SUBSEQUENT DOSES TAKEN ON 02/FEB/2018, 23/FEB/2018, 16/MAR/2018, 16/APR/2018, 27/APR/2018, 18/MAY/20
     Route: 042
     Dates: start: 20180112, end: 20180608
  15. DEXAMETHASONE. [Concomitant]
     Active Substance: DEXAMETHASONE
     Indication: PREMEDICATION
     Route: 042
     Dates: start: 20171222, end: 20180608
  16. HYDROCORTISONE. [Concomitant]
     Active Substance: HYDROCORTISONE
     Indication: PREMEDICATION
     Route: 042
     Dates: start: 20171222
  17. LACTULOSE. [Concomitant]
     Active Substance: LACTULOSE
     Indication: CONSTIPATION
     Route: 048
     Dates: start: 20171222, end: 20180111
  18. ENTECAVIR. [Concomitant]
     Active Substance: ENTECAVIR
     Indication: HEPATITIS B ANTIGEN
     Dosage: HEPATITIS B ANTIGEN CARRIER
     Route: 048
     Dates: start: 20171225
  19. METOCLOPRAMIDE. [Concomitant]
     Active Substance: METOCLOPRAMIDE
     Route: 048
     Dates: start: 20180428

REACTIONS (4)
  - Periodontal disease [Recovering/Resolving]
  - Pyrexia [Recovered/Resolved]
  - Febrile neutropenia [Recovered/Resolved]
  - Neutrophil count decreased [Recovered/Resolved]

NARRATIVE: CASE EVENT DATE: 20180121
